FAERS Safety Report 12933622 (Version 1)
Quarter: 2016Q4

REPORT INFORMATION
  Report Type: Spontaneous
  Country: US (occurrence: US)
  Receive Date: 20161111
  Receipt Date: 20161111
  Transmission Date: 20170207
  Serious: Yes (Hospitalization)
  Sender: FDA-Public Use
  Company Number: US-NORTH CREEK PHARMACEUTICALS LLC-2016VTS00276

PATIENT
  Age: 56 Year
  Sex: Male
  Weight: 74 kg

DRUGS (12)
  1. TAMSULOSIN [Concomitant]
     Active Substance: TAMSULOSIN
     Dosage: UNK
     Dates: start: 20151202
  2. ESCITALOPRAM [Concomitant]
     Active Substance: ESCITALOPRAM OXALATE
  3. LOVENOX [Concomitant]
     Active Substance: ENOXAPARIN SODIUM
  4. ONDANSETRON [Concomitant]
     Active Substance: ONDANSETRON
  5. POTASSIUM CHLORIDE. [Concomitant]
     Active Substance: POTASSIUM CHLORIDE
     Dosage: UNK
     Dates: start: 20160903
  6. TACROLIMUS. [Concomitant]
     Active Substance: TACROLIMUS
     Dosage: UNK
     Dates: start: 20150826
  7. VANCOMYCIN [Concomitant]
     Active Substance: VANCOMYCIN
  8. DAPSONE. [Suspect]
     Active Substance: DAPSONE
     Indication: BACTERIAL INFECTION
     Dosage: 100 MG, 1X/DAY
     Route: 048
     Dates: start: 20150821
  9. ASP2215 [Suspect]
     Active Substance: GILTERITINIB
     Indication: ACUTE MYELOID LEUKAEMIA
     Dosage: 200 MG, 1X/DAY
     Route: 048
     Dates: start: 20141215
  10. ACYCLOVIR. [Concomitant]
     Active Substance: ACYCLOVIR
     Dosage: UNK
     Dates: start: 20150309
  11. CASPOFUNGIN [Concomitant]
     Active Substance: CASPOFUNGIN
     Dosage: UNK
     Dates: start: 20150710
  12. LEVOTHYROXINE. [Concomitant]
     Active Substance: LEVOTHYROXINE

REACTIONS (2)
  - Dehydration [Recovered/Resolved]
  - Clostridium difficile colitis [Recovered/Resolved]

NARRATIVE: CASE EVENT DATE: 20151213
